FAERS Safety Report 6188966-3 (Version None)
Quarter: 2009Q2

REPORT INFORMATION
  Report Type: 
  Country: None (occurrence: None)
  Receive Date: 20090511
  Receipt Date: 20090505
  Transmission Date: 20091009
  Serious: Yes (Other)
  Sender: FDA-Public Use
  Company Number: A0782493A

PATIENT
  Age: 68 Year
  Sex: Female

DRUGS (1)
  1. UREA HYDROGEN PEROXIDE DROP(S) (UREA HYDROGEN PEROXIDE) [Suspect]
     Dosage: AURAL

REACTIONS (2)
  - DEAFNESS UNILATERAL [None]
  - TREATMENT NONCOMPLIANCE [None]
